FAERS Safety Report 21471679 (Version 1)
Quarter: 2022Q4

REPORT INFORMATION
  Report Type: Spontaneous
  Country: US (occurrence: None)
  Receive Date: 20221018
  Receipt Date: 20221018
  Transmission Date: 20230113
  Serious: Yes (unspecified)
  Sender: FDA-Public Use
  Company Number: None

PATIENT
  Age: 45 Year
  Sex: Female
  Weight: 57.9 kg

DRUGS (5)
  1. FERRLECIT [Suspect]
     Active Substance: SODIUM FERRIC GLUCONATE COMPLEX
     Indication: Iron deficiency anaemia
     Dosage: FREQUENCY : ONCE;?
     Route: 041
     Dates: start: 20221017, end: 20221017
  2. Diphenhydramine 25 mg IVP [Concomitant]
     Dates: start: 20221017, end: 20221017
  3. Hydrocortisone 100 mg IVP [Concomitant]
     Dates: start: 20221017, end: 20221017
  4. Ondansetron 4 mg IVP [Concomitant]
     Dates: start: 20221017, end: 20221017
  5. Ondansetron 4 mg IVP [Concomitant]
     Dates: start: 20221017, end: 20221017

REACTIONS (8)
  - Dysgeusia [None]
  - Nausea [None]
  - Pruritus [None]
  - Urticaria [None]
  - Pallor [None]
  - Livedo reticularis [None]
  - Abdominal discomfort [None]
  - Vomiting [None]

NARRATIVE: CASE EVENT DATE: 20221017
